FAERS Safety Report 21354334 (Version 1)
Quarter: 2022Q3

REPORT INFORMATION
  Report Type: Report from Study
  Country: JP (occurrence: JP)
  Receive Date: 20220920
  Receipt Date: 20220920
  Transmission Date: 20221027
  Serious: Yes (Other)
  Sender: FDA-Public Use
  Company Number: JP-PFIZER INC-202201139358

PATIENT
  Age: 49 Year
  Sex: Male

DRUGS (1)
  1. BOSUTINIB [Suspect]
     Active Substance: BOSUTINIB
     Indication: Chronic myeloid leukaemia (in remission)
     Dosage: 300 MG, DAILY

REACTIONS (2)
  - Eosinophilia [Recovered/Resolved]
  - Drug-induced liver injury [Recovered/Resolved]
